FAERS Safety Report 7251852-1 (Version None)
Quarter: 2011Q1

REPORT INFORMATION
  Report Type: 
  Country: None (occurrence: None)
  Receive Date: 20110128
  Receipt Date: 20100111
  Transmission Date: 20110831
  Serious: No
  Sender: FDA-Public Use
  Company Number: US-ABBOTT-10P-163-0618376-00

PATIENT
  Sex: Male

DRUGS (2)
  1. PENTASA [Concomitant]
     Indication: PRODUCT USED FOR UNKNOWN INDICATION
  2. HUMIRA [Suspect]
     Indication: CROHN'S DISEASE
     Dosage: DAY 15
     Dates: start: 20090514

REACTIONS (7)
  - PAIN [None]
  - NAUSEA [None]
  - VOMITING [None]
  - ASTHENIA [None]
  - HEADACHE [None]
  - EYE PAIN [None]
  - TOOTH INFECTION [None]
